FAERS Safety Report 10391781 (Version 2)
Quarter: 2014Q3

REPORT INFORMATION
  Report Type: Report from Study
  Country: US (occurrence: US)
  Receive Date: 20140819
  Receipt Date: 20140819
  Transmission Date: 20150326
  Serious: Yes (Hospitalization, Other)
  Sender: FDA-Public Use
  Company Number: US-ROCHE-1379565

PATIENT
  Age: 59 Year
  Sex: Female
  Weight: 74.91 kg

DRUGS (56)
  1. PREDNISONE. [Concomitant]
     Active Substance: PREDNISONE
     Indication: ANAPHYLACTIC REACTION
     Route: 048
     Dates: start: 20130225, end: 201302
  2. REGLAN [Concomitant]
     Active Substance: METOCLOPRAMIDE HYDROCHLORIDE
     Route: 050
     Dates: start: 20130209, end: 20130209
  3. TRAMADOL [Concomitant]
     Active Substance: TRAMADOL
     Indication: PAIN
     Route: 048
     Dates: start: 201303
  4. CHLOR-TRIMETON [Concomitant]
     Active Substance: CHLORPHENIRAMINE MALEATE
     Indication: HYPERSENSITIVITY
     Dosage: T TAB
     Route: 048
     Dates: start: 20120306
  5. VITAMIN B12 [Concomitant]
     Active Substance: CYANOCOBALAMIN
     Dosage: T TAB
     Route: 048
     Dates: start: 200911
  6. VALIUM [Concomitant]
     Active Substance: DIAZEPAM
     Route: 050
     Dates: start: 20130130, end: 20130130
  7. VALIUM [Concomitant]
     Active Substance: DIAZEPAM
     Dosage: 1 TAB
     Route: 048
     Dates: start: 20130130, end: 20130202
  8. KENALOG [Concomitant]
     Active Substance: TRIAMCINOLONE ACETONIDE
     Route: 014
     Dates: start: 20140115
  9. HUMALOG [Concomitant]
     Active Substance: INSULIN LISPRO
     Indication: DIABETES MELLITUS
     Route: 050
     Dates: start: 20110702
  10. MUCINEX [Concomitant]
     Active Substance: GUAIFENESIN
     Route: 048
     Dates: start: 20121010
  11. METFORMIN [Concomitant]
     Active Substance: METFORMIN HYDROCHLORIDE
     Route: 048
     Dates: start: 20131108
  12. CHERATUSSIN AC [Concomitant]
     Active Substance: CODEINE PHOSPHATE\GUAIFENESIN
     Indication: SINUSITIS
     Dosage: T TAB
     Route: 048
     Dates: start: 20121004, end: 20121006
  13. NORMAL SALINE [Concomitant]
     Active Substance: SODIUM CHLORIDE
     Route: 042
     Dates: start: 20130130
  14. CEPHALEXIN. [Concomitant]
     Active Substance: CEPHALEXIN
     Indication: PHARYNGITIS
     Route: 048
     Dates: start: 201309, end: 201310
  15. CHLORZOXAZONE. [Concomitant]
     Active Substance: CHLORZOXAZONE
     Indication: MYALGIA
     Route: 048
     Dates: start: 201310, end: 201310
  16. ZYRTEC [Concomitant]
     Active Substance: CETIRIZINE HYDROCHLORIDE
     Indication: HYPERSENSITIVITY
     Route: 048
     Dates: start: 201404
  17. CHERATUSSIN AC [Concomitant]
     Active Substance: CODEINE PHOSPHATE\GUAIFENESIN
     Dosage: 10-100 ML
     Route: 048
     Dates: start: 201309
  18. AZITHROMYCIN [Concomitant]
     Active Substance: AZITHROMYCIN ANHYDROUS
     Indication: SINUSITIS
     Dosage: T TAB
     Route: 048
     Dates: start: 20121004, end: 20121009
  19. FISH OIL [Concomitant]
     Active Substance: FISH OIL
     Route: 048
  20. RANIBIZUMAB [Suspect]
     Active Substance: RANIBIZUMAB
     Route: 050
     Dates: start: 20120809, end: 20130218
  21. TORADOL [Concomitant]
     Active Substance: KETOROLAC TROMETHAMINE
     Route: 050
     Dates: start: 20130209, end: 20130209
  22. MUCINEX [Concomitant]
     Active Substance: GUAIFENESIN
     Indication: SINUSITIS
     Route: 048
     Dates: start: 20121004, end: 20121010
  23. KETOROLAC [Concomitant]
     Active Substance: KETOROLAC\KETOROLAC TROMETHAMINE
     Indication: PAIN
     Route: 042
     Dates: start: 20121027, end: 20121027
  24. KEFLEX [Concomitant]
     Active Substance: CEPHALEXIN
     Indication: HYPERSENSITIVITY
     Route: 048
     Dates: start: 20120907, end: 20120914
  25. AMOXICILLIN/CLAVULANIC ACID [Concomitant]
     Active Substance: AMOXICILLIN\CLAVULANIC ACID
     Route: 048
     Dates: start: 201309, end: 201309
  26. TYLENOL [Concomitant]
     Active Substance: ACETAMINOPHEN
     Indication: HYPERSENSITIVITY
     Dosage: 12 TABS
     Route: 048
     Dates: start: 201211
  27. LANTUS [Concomitant]
     Active Substance: INSULIN GLARGINE
     Indication: DIABETES MELLITUS
     Route: 050
     Dates: start: 20130318
  28. PREDNISONE. [Concomitant]
     Active Substance: PREDNISONE
     Indication: SINUSITIS
     Route: 048
     Dates: start: 20130220, end: 20130224
  29. CINNAMON. [Concomitant]
     Active Substance: CINNAMON
     Indication: NEUROPATHY PERIPHERAL
     Dosage: T TAB
     Route: 048
     Dates: start: 20111121
  30. AMPICILLIN [Concomitant]
     Active Substance: AMPICILLIN
     Indication: HYPERSENSITIVITY
     Route: 048
     Dates: start: 20120907, end: 20120912
  31. MORPHINE [Concomitant]
     Active Substance: MORPHINE
     Indication: PAIN
     Route: 042
     Dates: start: 20121024, end: 20121024
  32. FIORICET [Concomitant]
     Active Substance: ACETAMINOPHEN\BUTALBITAL\CAFFEINE
     Indication: MIGRAINE
     Dosage: 1-2 TABS
     Route: 048
     Dates: start: 201303, end: 201303
  33. CYCLOBENZAPRINE [Concomitant]
     Active Substance: CYCLOBENZAPRINE
     Route: 048
     Dates: start: 20140212
  34. RANIBIZUMAB [Suspect]
     Active Substance: RANIBIZUMAB
     Indication: AGE-RELATED MACULAR DEGENERATION
     Route: 050
     Dates: start: 20120621, end: 20120719
  35. MECLIZINE [Concomitant]
     Active Substance: MECLIZINE\MECLIZINE HYDROCHLORIDE
     Indication: NAUSEA
     Route: 048
     Dates: start: 20130130, end: 20130202
  36. SINGULAIR [Concomitant]
     Active Substance: MONTELUKAST SODIUM
     Indication: HYPERSENSITIVITY
     Route: 048
     Dates: start: 20110303, end: 201209
  37. AMOXICILLIN/CLAVULANIC ACID [Concomitant]
     Active Substance: AMOXICILLIN\CLAVULANIC ACID
     Route: 048
     Dates: start: 20130111, end: 20130121
  38. ARBINOXA [Concomitant]
     Active Substance: CARBINOXAMINE MALEATE
     Indication: HYPERSENSITIVITY
     Dosage: T TAB1
     Route: 048
     Dates: start: 20121004, end: 20121006
  39. MORPHINE [Concomitant]
     Active Substance: MORPHINE
     Route: 042
     Dates: start: 20121024, end: 20121024
  40. VICODIN [Concomitant]
     Active Substance: ACETAMINOPHEN\HYDROCODONE BITARTRATE
     Indication: PAIN
     Route: 048
     Dates: start: 20121022, end: 20121026
  41. CARBINOXAMINE [Concomitant]
     Active Substance: CARBINOXAMINE
     Route: 048
     Dates: start: 20130130, end: 201302
  42. DICLOFENAC SODIUM. [Concomitant]
     Active Substance: DICLOFENAC SODIUM
     Indication: PAIN
     Route: 048
     Dates: start: 20130514, end: 20130520
  43. CLARITIN [Concomitant]
     Active Substance: LORATADINE
     Dosage: 1 TAB
     Route: 048
     Dates: start: 20140220, end: 201403
  44. PROMETHAZINE [Concomitant]
     Active Substance: PROMETHAZINE\PROMETHAZINE HYDROCHLORIDE
     Indication: NAUSEA
     Dosage: 6.25 - 15 MG/5ML
     Route: 048
     Dates: start: 201308, end: 201308
  45. PREDNISONE. [Concomitant]
     Active Substance: PREDNISONE
     Route: 048
     Dates: start: 20131121, end: 20131121
  46. METFORMIN [Concomitant]
     Active Substance: METFORMIN HYDROCHLORIDE
     Indication: DIABETES MELLITUS
     Route: 048
     Dates: start: 20100220, end: 20130515
  47. BENADRYL [Concomitant]
     Active Substance: DIPHENHYDRAMINE HYDROCHLORIDE
     Route: 050
     Dates: start: 20130209, end: 20130209
  48. AMOXICILLIN/CLAVULANIC ACID [Concomitant]
     Active Substance: AMOXICILLIN\CLAVULANIC ACID
     Indication: SINUSITIS
     Dosage: T TAB
     Route: 048
     Dates: start: 20121009, end: 20121019
  49. FIORICET [Concomitant]
     Active Substance: ACETAMINOPHEN\BUTALBITAL\CAFFEINE
     Indication: PAIN
     Dosage: 1-2 TABS
     Route: 048
     Dates: start: 20130210, end: 20130213
  50. TORADOL [Concomitant]
     Active Substance: KETOROLAC TROMETHAMINE
     Indication: PAIN
     Route: 042
     Dates: start: 20121024, end: 20121024
  51. VICTOZA [Concomitant]
     Active Substance: LIRAGLUTIDE
     Indication: DIABETES MELLITUS
     Route: 050
     Dates: start: 20110702, end: 20131028
  52. LEVOFLOXACIN [Concomitant]
     Active Substance: LEVOFLOXACIN
     Indication: SINUSITIS
     Route: 048
     Dates: start: 20130215, end: 201302
  53. METFORMIN [Concomitant]
     Active Substance: METFORMIN HYDROCHLORIDE
     Route: 048
     Dates: start: 20130515
  54. HYDROCODONE/APAP [Concomitant]
     Active Substance: ACETAMINOPHEN\HYDROCODONE
     Indication: PAIN
     Route: 048
     Dates: start: 20130211
  55. NORMAL SALINE [Concomitant]
     Active Substance: SODIUM CHLORIDE
     Route: 042
     Dates: start: 20130209, end: 20130209
  56. ZOFRAN [Concomitant]
     Active Substance: ONDANSETRON HYDROCHLORIDE
     Indication: NAUSEA
     Route: 042
     Dates: start: 20121027, end: 20121027

REACTIONS (6)
  - Nausea [Unknown]
  - Anaphylactic reaction [Recovered/Resolved]
  - Migraine [Unknown]
  - Chest pain [Unknown]
  - Headache [Unknown]
  - Trigeminal neuralgia [Unknown]

NARRATIVE: CASE EVENT DATE: 20130306
